FAERS Safety Report 9217352 (Version 1)
Quarter: 2013Q2

REPORT INFORMATION
  Report Type: Spontaneous
  Country: IN (occurrence: IN)
  Receive Date: 20130408
  Receipt Date: 20130408
  Transmission Date: 20140414
  Serious: Yes (Death)
  Sender: FDA-Public Use
  Company Number: IN-ROCHE-1206004

PATIENT
  Sex: Male

DRUGS (2)
  1. ACTILYSE [Suspect]
     Indication: PULMONARY EMBOLISM
     Route: 042
     Dates: start: 20061120, end: 20061120
  2. HEPARIN [Concomitant]
     Indication: PULMONARY EMBOLISM
     Route: 042

REACTIONS (1)
  - Death [Fatal]
